FAERS Safety Report 16478572 (Version 1)
Quarter: 2019Q2

REPORT INFORMATION
  Report Type: Spontaneous
  Country: US (occurrence: US)
  Receive Date: 20190626
  Receipt Date: 20190626
  Transmission Date: 20190711
  Serious: No
  Sender: FDA-Public Use
  Company Number: US-PFIZER INC-2019262702

PATIENT
  Sex: Female

DRUGS (1)
  1. CELEBREX [Suspect]
     Active Substance: CELECOXIB
     Dosage: 150 MG, 1X/DAY (FOR THREE MONTHS)

REACTIONS (3)
  - Diarrhoea [Unknown]
  - Constipation [Unknown]
  - Pain [Unknown]
